FAERS Safety Report 4623922-5 (Version None)
Quarter: 2005Q1

REPORT INFORMATION
  Report Type: 
  Country: None (occurrence: None)
  Receive Date: 20050331
  Receipt Date: 20050126
  Transmission Date: 20050727
  Serious: Yes (Hospitalization)
  Sender: FDA-Public Use
  Company Number: US-MERCK-0501USA04045

PATIENT
  Age: 52 Year
  Sex: Male
  Weight: 79 kg

DRUGS (8)
  1. VIOXX [Suspect]
     Indication: MONARTHRITIS
     Route: 048
     Dates: start: 20010101, end: 20020301
  2. VIOXX [Suspect]
     Route: 048
     Dates: start: 20010101, end: 20020301
  3. SERZONE [Concomitant]
     Indication: TOURETTE'S DISORDER
     Route: 048
  4. SERZONE [Concomitant]
     Route: 048
  5. WELLBUTRIN [Concomitant]
     Indication: TOURETTE'S DISORDER
     Route: 065
  6. WELLBUTRIN [Concomitant]
     Route: 065
  7. CLONAZEPAM [Concomitant]
     Route: 048
  8. DOXYCYCLINE [Concomitant]
     Indication: HORDEOLUM
     Route: 065
     Dates: end: 20020301

REACTIONS (12)
  - BLOOD CREATINE PHOSPHOKINASE MB INCREASED [None]
  - BLOOD UREA INCREASED [None]
  - CARDIAC MURMUR [None]
  - DYSPEPSIA [None]
  - DYSPNOEA [None]
  - ELECTROCARDIOGRAM T WAVE INVERSION [None]
  - EMOTIONAL DISTRESS [None]
  - FEELING ABNORMAL [None]
  - HORDEOLUM [None]
  - MYOGLOBIN BLOOD INCREASED [None]
  - PULMONARY HYPERTENSION [None]
  - UPPER RESPIRATORY TRACT INFECTION [None]
